FAERS Safety Report 4450596-9 (Version None)
Quarter: 2004Q3

REPORT INFORMATION
  Report Type: 
  Country: None (occurrence: None)
  Receive Date: 20040913
  Receipt Date: 20040622
  Transmission Date: 20050211
  Serious: No
  Sender: FDA-Public Use
  Company Number: 2004-BP-04993BP(0)

PATIENT
  Sex: Female

DRUGS (10)
  1. SPIRIVA [Suspect]
     Indication: CHRONIC OBSTRUCTIVE AIRWAYS DISEASE
     Dosage: 18 MCG (18 MCG, 18 MCG DAILY), IH
     Route: 055
     Dates: start: 20040614
  2. COMBIVENT [Suspect]
     Indication: CHRONIC OBSTRUCTIVE AIRWAYS DISEASE
     Dosage: SEE TEXT PRN, IH
     Route: 055
  3. XOPINEX [Concomitant]
  4. IPRATROPIUM BROMIDE [Concomitant]
  5. THEOPHYLLINE [Concomitant]
  6. HUMABID [Concomitant]
  7. LORAZEPAM [Concomitant]
  8. OXYGEN (OXYGEN) [Concomitant]
  9. ZITHROMAX [Concomitant]
  10. ADVAIR (SERETIDE MITE) [Concomitant]

REACTIONS (3)
  - ASTHENIA [None]
  - INSOMNIA [None]
  - TREMOR [None]
